FAERS Safety Report 14509816 (Version 1)
Quarter: 2018Q1

REPORT INFORMATION
  Report Type: Spontaneous
  Country: US (occurrence: US)
  Receive Date: 20180207
  Receipt Date: 20180207
  Transmission Date: 20180509
  Serious: Yes (Hospitalization)
  Sender: FDA-Public Use
  Company Number: None

PATIENT
  Age: 64 Year
  Sex: Male

DRUGS (1)
  1. CAPECITABINE 500MG [Suspect]
     Active Substance: CAPECITABINE
     Route: 048

REACTIONS (4)
  - Full blood count decreased [None]
  - Asthenia [None]
  - Ill-defined disorder [None]
  - Fall [None]

NARRATIVE: CASE EVENT DATE: 20180114
